FAERS Safety Report 9980955 (Version 1)
Quarter: 2014Q1

REPORT INFORMATION
  Report Type: Spontaneous
  Country: US (occurrence: US)
  Receive Date: 20140307
  Receipt Date: 20140307
  Transmission Date: 20141002
  Serious: No
  Sender: FDA-Public Use
  Company Number: US-GLAXOSMITHKLINE-A1045048A

PATIENT
  Age: 61 Year
  Sex: Male

DRUGS (5)
  1. REQUIP [Suspect]
     Indication: PARKINSON^S DISEASE
     Dosage: 3MG THREE TIMES PER DAY
     Route: 048
     Dates: start: 201309
  2. STALEVO [Concomitant]
  3. AZILECT [Concomitant]
  4. NEUPRO [Concomitant]
  5. REQUIP XL [Concomitant]

REACTIONS (2)
  - Somnolence [Not Recovered/Not Resolved]
  - Drug ineffective [Unknown]
